FAERS Safety Report 23416895 (Version 1)
Quarter: 2024Q1

REPORT INFORMATION
  Report Type: Spontaneous
  Country: US (occurrence: US)
  Receive Date: 20240118
  Receipt Date: 20240118
  Transmission Date: 20240410
  Serious: No
  Sender: FDA-Public Use
  Company Number: US-PFIZER INC-PV202400005804

PATIENT

DRUGS (1)
  1. NURTEC ODT [Suspect]
     Active Substance: RIMEGEPANT SULFATE
     Indication: Migraine
     Dosage: TAKING MORE THAN 2 MIGRAINE RESCUE DRUGS LIKE NURTEC PER WEEK

REACTIONS (3)
  - Migraine [Unknown]
  - Disease recurrence [Unknown]
  - Off label use [Unknown]
